FAERS Safety Report 16712025 (Version 1)
Quarter: 2019Q3

REPORT INFORMATION
  Report Type: Spontaneous
  Country: US (occurrence: US)
  Receive Date: 20190816
  Receipt Date: 20190816
  Transmission Date: 20191004
  Serious: No
  Sender: FDA-Public Use
  Company Number: US-TEVA-2019-US-1092433

PATIENT
  Sex: Female

DRUGS (3)
  1. BACLOFEN. [Suspect]
     Active Substance: BACLOFEN
     Indication: INSOMNIA
  2. BACLOFEN. [Suspect]
     Active Substance: BACLOFEN
     Indication: MIGRAINE
  3. BACLOFEN. [Suspect]
     Active Substance: BACLOFEN
     Indication: FIBROMYALGIA
     Route: 065
     Dates: start: 2019

REACTIONS (3)
  - Sedation [Unknown]
  - Drug ineffective [Unknown]
  - Product use in unapproved indication [Unknown]
